FAERS Safety Report 4381678-8 (Version None)
Quarter: 2004Q2

REPORT INFORMATION
  Report Type: 
  Country: None (occurrence: None)
  Receive Date: 20040603
  Receipt Date: 20031105
  Transmission Date: 20050107
  Serious: Yes (Other)
  Sender: FDA-Public Use
  Company Number: 200318467US

PATIENT
  Sex: Female

DRUGS (2)
  1. LOVENOX [Suspect]
     Indication: DEEP VEIN THROMBOSIS
  2. WARFARIN SODIUM [Concomitant]

REACTIONS (5)
  - BLISTER [None]
  - HAEMOTHORAX [None]
  - INTERNATIONAL NORMALISED RATIO INCREASED [None]
  - SKIN INFECTION [None]
  - WOUND DRAINAGE [None]
